FAERS Safety Report 5889870-8 (Version None)
Quarter: 2008Q3

REPORT INFORMATION
  Report Type: 
  Country: None (occurrence: None)
  Receive Date: 20080919
  Receipt Date: 20080910
  Transmission Date: 20090109
  Serious: Yes (Hospitalization, Other)
  Sender: FDA-Public Use
  Company Number: AR-ABBOTT-08P-007-0446915-00

PATIENT
  Sex: Male
  Weight: 73 kg

DRUGS (15)
  1. HUMIRA [Suspect]
     Indication: RHEUMATOID ARTHRITIS
     Route: 058
     Dates: start: 20080213, end: 20080326
  2. METHOTREXATE [Suspect]
     Indication: RHEUMATOID ARTHRITIS
     Route: 048
     Dates: start: 20080213, end: 20080326
  3. ENALAPRIL [Concomitant]
     Indication: HYPERTENSION
     Dates: start: 19970101, end: 20080411
  4. ENALAPRIL [Concomitant]
     Dates: start: 20080426
  5. ACETYL SALICYLIC ACID COMPOUND TAB [Concomitant]
     Indication: CARDIOVASCULAR EVENT PROPHYLAXIS
     Dates: start: 19970101, end: 20080411
  6. ACETYL SALICYLIC ACID COMPOUND TAB [Concomitant]
     Dates: start: 20080426
  7. REDUPROST [Concomitant]
     Indication: BENIGN PROSTATIC HYPERPLASIA
     Dates: start: 19970101, end: 20080411
  8. REDUPROST [Concomitant]
     Dates: start: 20080426
  9. IBUPROFEN [Concomitant]
     Indication: RHEUMATOID ARTHRITIS
     Dates: start: 20071201, end: 20080411
  10. CLONIXIN [Concomitant]
     Indication: RHEUMATOID ARTHRITIS
     Dates: start: 20071201, end: 20080411
  11. DEXAMETHASONE [Concomitant]
     Indication: RHEUMATOID ARTHRITIS
     Dates: start: 20080130, end: 20080411
  12. FOLIC ACID [Concomitant]
     Indication: RHEUMATOID ARTHRITIS
     Dates: start: 20080216, end: 20080405
  13. NORFLOXACIN [Concomitant]
     Indication: PROSTATITIS
     Dates: start: 20080328, end: 20080401
  14. DIOCAM [Concomitant]
     Indication: ANXIETY
     Dates: start: 20080404, end: 20080411
  15. ISONIAZID [Concomitant]
     Indication: ANTIBIOTIC PROPHYLAXIS
     Dates: start: 20080130

REACTIONS (1)
  - ALVEOLITIS ALLERGIC [None]
